FAERS Safety Report 4543189-6 (Version None)
Quarter: 2004Q4

REPORT INFORMATION
  Report Type: 
  Country: None (occurrence: None)
  Receive Date: 20041230
  Receipt Date: 20041228
  Transmission Date: 20050328
  Serious: Yes (Other)
  Sender: FDA-Public Use
  Company Number: 04-12-1706

PATIENT
  Age: 31 Year
  Sex: Female

DRUGS (3)
  1. CLOZAPINE [Suspect]
     Indication: BIPOLAR DISORDER
     Dosage: 75MG QD, ORAL
     Route: 048
     Dates: start: 20041101
  2. DEPAKOTE [Suspect]
  3. KLONOPIN [Concomitant]

REACTIONS (6)
  - ANAEMIA MACROCYTIC [None]
  - DRUG LEVEL INCREASED [None]
  - NEUTROPHIL COUNT INCREASED [None]
  - PAIN [None]
  - PHARYNGITIS [None]
  - SEDATION [None]
